FAERS Safety Report 10487057 (Version 1)
Quarter: 2014Q4

REPORT INFORMATION
  Report Type: Spontaneous
  Country: IS (occurrence: IS)
  Receive Date: 20141001
  Receipt Date: 20141001
  Transmission Date: 20150528
  Serious: Yes (Death, Other)
  Sender: FDA-Public Use
  Company Number: PHHY2014IS127466

PATIENT
  Age: 22 Year
  Sex: Female

DRUGS (1)
  1. RITALIN [Suspect]
     Active Substance: METHYLPHENIDATE HYDROCHLORIDE
     Dosage: UNK UKN, UNK
     Dates: start: 2006

REACTIONS (2)
  - Drug abuse [Unknown]
  - Completed suicide [Fatal]

NARRATIVE: CASE EVENT DATE: 20140912
